FAERS Safety Report 7791916-7 (Version None)
Quarter: 2011Q4

REPORT INFORMATION
  Report Type: 
  Country: None (occurrence: None)
  Receive Date: 20111003
  Receipt Date: 20110928
  Transmission Date: 20120403
  Serious: Yes (Other)
  Sender: FDA-Public Use
  Company Number: US-PFIZER INC-2011231319

PATIENT
  Sex: Male

DRUGS (2)
  1. PHENYTOIN [Suspect]
     Dosage: UNK
  2. DILANTIN-125 [Suspect]
     Dosage: UNK

REACTIONS (1)
  - CONVULSION [None]
